FAERS Safety Report 14575823 (Version 4)
Quarter: 2018Q4

REPORT INFORMATION
  Report Type: Report from Study
  Country: US (occurrence: US)
  Receive Date: 20180227
  Receipt Date: 20181106
  Transmission Date: 20190204
  Serious: Yes (Other)
  Sender: FDA-Public Use
  Company Number: PHEH2018US007872

PATIENT
  Age: 85 Year
  Sex: Female
  Weight: 52 kg

DRUGS (7)
  1. ENTRESTO [Suspect]
     Active Substance: SACUBITRIL\VALSARTAN
     Indication: CARDIOMYOPATHY
     Dosage: 1 DF (SACUBITRIL 24MG AND VALSARTAN 26MG), UNK
     Route: 048
  2. BROVANA [Concomitant]
     Active Substance: ARFORMOTEROL TARTRATE
     Indication: CHRONIC OBSTRUCTIVE PULMONARY DISEASE
     Route: 055
  3. CARVEDILOL. [Concomitant]
     Active Substance: CARVEDILOL
     Indication: CARDIOMYOPATHY
     Dosage: 3.125 MG, UNK
     Route: 048
  4. LASIX [Concomitant]
     Active Substance: FUROSEMIDE
     Indication: OEDEMA
     Dosage: 20 MG, PRN
     Route: 048
  5. ATORVASTATIN [Concomitant]
     Active Substance: ATORVASTATIN
     Indication: PRODUCT USED FOR UNKNOWN INDICATION
     Dosage: 40 MG, UNK
     Route: 048
  6. CLOPIDOGREL [Concomitant]
     Active Substance: CLOPIDOGREL BISULFATE
     Indication: CORONARY ARTERY DISEASE
     Dosage: 75 MG, UNK
     Route: 048
  7. ISOSORBIDE. [Concomitant]
     Active Substance: ISOSORBIDE
     Indication: CORONARY ARTERY DISEASE
     Dosage: 30 MG, UNK
     Route: 048

REACTIONS (6)
  - Drug ineffective [Unknown]
  - Ejection fraction decreased [Not Recovered/Not Resolved]
  - Dyspnoea [Unknown]
  - Hypotension [Recovering/Resolving]
  - Orthopnoea [Unknown]
  - Product use in unapproved indication [Unknown]

NARRATIVE: CASE EVENT DATE: 20180215
